FAERS Safety Report 8242253-8 (Version None)
Quarter: 2012Q1

REPORT INFORMATION
  Report Type: 
  Country: None (occurrence: None)
  Receive Date: 20120329
  Receipt Date: 20120323
  Transmission Date: 20120608
  Serious: No
  Sender: FDA-Public Use
  Company Number: US-PFIZER INC-2012043479

PATIENT
  Sex: Male
  Weight: 72.1 kg

DRUGS (11)
  1. ZOCOR [Concomitant]
     Dosage: 40 MG, 1X/DAY (1, ONCE A DAY, AT BEDTIME)
     Route: 048
  2. ATENOLOL [Concomitant]
     Indication: HYPERTENSION
     Dosage: 50 MG, 2X/DAY
     Route: 048
  3. KLOR-CON [Concomitant]
     Dosage: 10 MEQ, 1X/DAY, (1 TABLET, ONCE A DAY)
     Route: 048
  4. SUTENT [Suspect]
     Indication: RENAL CELL CARCINOMA
     Dosage: 37.5 MG, 1X/DAY, DAILY X 4 WEEKS, THEN 2 WEEKS OFF
     Route: 048
     Dates: start: 20120121, end: 20120209
  5. BUMEX [Concomitant]
     Dosage: 0.5 MG, 1X/DAY, (1 TABLET, ONCE A DAY, MORNING)
     Route: 048
  6. FISH OIL [Concomitant]
     Dosage: UNK, 2X/DAY, (1, TWO TIMES A DAY)
     Route: 048
  7. CALCIUM W/COLECALCIFEROL [Concomitant]
     Dosage: 600 MG, 2X/DAY, (1 WITH VITAMIN D3 TWO TIMES A DAY)
     Route: 048
  8. LEUPROLIDE ACETATE [Concomitant]
     Dosage: (1 INJECTION, AS DIRECTED, NOTES: GIVEN EVERY 6 MONTHS)
     Route: 030
  9. VITAMIN B COMPLEX WITH C [Concomitant]
     Dosage: (1 TABLED DAILY)
  10. ACETYLSALICYLIC ACID [Concomitant]
     Dosage: 81 MG, 1X/DAY
  11. MULTI-VITAMINS [Concomitant]
     Dosage: (1 TABLET DAILY)

REACTIONS (9)
  - ORAL PAIN [None]
  - FATIGUE [None]
  - DYSPHAGIA [None]
  - ASTHENIA [None]
  - DRY MOUTH [None]
  - APPETITE DISORDER [None]
  - STOMATITIS [None]
  - DEHYDRATION [None]
  - DIARRHOEA [None]
